FAERS Safety Report 7651402-1 (Version None)
Quarter: 2011Q3

REPORT INFORMATION
  Report Type: 
  Country: None (occurrence: None)
  Receive Date: 20110802
  Receipt Date: 20110722
  Transmission Date: 20111222
  Serious: Yes (Other)
  Sender: FDA-Public Use
  Company Number: PHEH2009US00593

PATIENT
  Sex: Male
  Weight: 86.168 kg

DRUGS (33)
  1. MEGACE [Concomitant]
  2. CYMBALTA [Concomitant]
  3. ZYRTEC [Concomitant]
  4. AUGMENTIN '125' [Concomitant]
     Dosage: UNK
  5. OSTEO BI-FLEX [Concomitant]
  6. ZOMETA [Suspect]
     Indication: PROSTATE CANCER METASTATIC
     Dosage: 4 MG, MONTHLY
     Route: 042
     Dates: start: 20040101, end: 20041201
  7. DETROL [Concomitant]
  8. AMOXIL ^AYERST LAB^ [Concomitant]
     Dosage: UNK
  9. ZANTAC [Concomitant]
  10. ARTIFICIAL TEARS [Concomitant]
  11. TYLENOL-500 [Concomitant]
  12. GLUCOSAMINE [Concomitant]
  13. PSORCON [Concomitant]
  14. ZOLOFT [Concomitant]
  15. PERCOCET [Concomitant]
  16. PROVENTIL [Concomitant]
  17. PREDNISONE [Concomitant]
  18. ALEVE [Concomitant]
  19. VALIUM [Concomitant]
  20. DEPO-MEDROL [Concomitant]
  21. ASPIRIN [Concomitant]
  22. CASODEX [Concomitant]
  23. LUPRON [Concomitant]
  24. LEVAQUIN [Concomitant]
  25. AMOXICILLIN [Concomitant]
  26. LIDOCAINE [Concomitant]
  27. IBUPROFEN [Concomitant]
     Dosage: 800 MG, TID
  28. PRILOSEC [Concomitant]
  29. MEGESTROL ACETATE [Concomitant]
  30. OXYCONTIN [Concomitant]
  31. DEXAMETHASONE [Concomitant]
  32. LISINOPRIL [Concomitant]
  33. CHONDROITIN A [Concomitant]

REACTIONS (92)
  - TRISMUS [None]
  - GASTROOESOPHAGEAL REFLUX DISEASE [None]
  - RESTLESS LEGS SYNDROME [None]
  - URINARY INCONTINENCE [None]
  - SCOLIOSIS [None]
  - TENDON INJURY [None]
  - FACET JOINT SYNDROME [None]
  - POSTURE ABNORMAL [None]
  - ORAL INFECTION [None]
  - EYE MOVEMENT DISORDER [None]
  - SPEECH DISORDER [None]
  - ANXIETY [None]
  - PYREXIA [None]
  - RECTAL POLYP [None]
  - RHINITIS ALLERGIC [None]
  - DRUG ABUSE [None]
  - OSTEOSCLEROSIS [None]
  - EXTRAOCULAR MUSCLE PARESIS [None]
  - TENDONITIS [None]
  - BENIGN BONE NEOPLASM [None]
  - DIVERTICULUM [None]
  - VERTIGO [None]
  - FALL [None]
  - BACK PAIN [None]
  - DIARRHOEA [None]
  - BONE LESION [None]
  - COLONIC POLYP [None]
  - ACQUIRED OESOPHAGEAL WEB [None]
  - HYPOKALAEMIA [None]
  - OVERWEIGHT [None]
  - SOMNOLENCE [None]
  - HEADACHE [None]
  - HEPATITIS ACUTE [None]
  - DENTAL PLAQUE [None]
  - HALLUCINATION [None]
  - TOOTHACHE [None]
  - PAIN [None]
  - PROSTATIC SPECIFIC ANTIGEN INCREASED [None]
  - NAUSEA [None]
  - SINUSITIS [None]
  - FAT NECROSIS [None]
  - SNORING [None]
  - SPINAL OSTEOARTHRITIS [None]
  - INTERVERTEBRAL DISC SPACE NARROWING [None]
  - MUSCULOSKELETAL PAIN [None]
  - ARTHRALGIA [None]
  - HYPOAESTHESIA [None]
  - FATIGUE [None]
  - PAIN IN JAW [None]
  - DRY MOUTH [None]
  - GINGIVAL DISORDER [None]
  - INTERVERTEBRAL DISC PROTRUSION [None]
  - LOSS OF CONSCIOUSNESS [None]
  - ABDOMINAL PAIN UPPER [None]
  - MAJOR DEPRESSION [None]
  - CHILLS [None]
  - METASTASES TO SPINE [None]
  - CYSTITIS RADIATION [None]
  - MUSCLE SPASMS [None]
  - HYPERTRANSAMINASAEMIA [None]
  - VISUAL IMPAIRMENT [None]
  - TOOTH DISORDER [None]
  - TOOTH FRACTURE [None]
  - DIZZINESS [None]
  - SLEEP DISORDER [None]
  - SENSITIVITY OF TEETH [None]
  - HYPERGLYCAEMIA [None]
  - MOBILITY DECREASED [None]
  - OSTEONECROSIS OF JAW [None]
  - EXPOSED BONE IN JAW [None]
  - PERIODONTAL DISEASE [None]
  - CHOLELITHIASIS [None]
  - MALAISE [None]
  - SINUS CONGESTION [None]
  - COLON ADENOMA [None]
  - HIATUS HERNIA [None]
  - CONVULSION [None]
  - VIITH NERVE PARALYSIS [None]
  - CHEST PAIN [None]
  - FAECAL INCONTINENCE [None]
  - HYPOGLYCAEMIA [None]
  - OEDEMA [None]
  - IMPAIRED HEALING [None]
  - VOMITING [None]
  - CHOLECYSTITIS CHRONIC [None]
  - DIVERTICULITIS [None]
  - RAPID EYE MOVEMENTS SLEEP ABNORMAL [None]
  - DIPLOPIA [None]
  - DYSPEPSIA [None]
  - ROTATOR CUFF SYNDROME [None]
  - MUSCLE STRAIN [None]
  - INTERVERTEBRAL DISC DEGENERATION [None]
